FAERS Safety Report 14417399 (Version 2)
Quarter: 2018Q1

REPORT INFORMATION
  Report Type: Spontaneous
  Country: US (occurrence: US)
  Receive Date: 20180122
  Receipt Date: 20180125
  Transmission Date: 20180509
  Serious: No
  Sender: FDA-Public Use
  Company Number: US-009507513-1801USA001403

PATIENT
  Age: 17 Year
  Sex: Female
  Weight: 52.15 kg

DRUGS (1)
  1. NEXPLANON [Suspect]
     Active Substance: ETONOGESTREL
     Indication: CONTRACEPTION
     Dosage: IMPLANT, LEFT ARM, EVERY THREE YEARS
     Route: 059
     Dates: start: 201602

REACTIONS (2)
  - Mood altered [Unknown]
  - Menorrhagia [Unknown]

NARRATIVE: CASE EVENT DATE: 201602
